FAERS Safety Report 7725489-1 (Version None)
Quarter: 2011Q3

REPORT INFORMATION
  Report Type: 
  Country: None (occurrence: None)
  Receive Date: 20110902
  Receipt Date: 20110726
  Transmission Date: 20111222
  Serious: No
  Sender: FDA-Public Use
  Company Number: US-BRISTOL-MYERS SQUIBB COMPANY-15896830

PATIENT
  Age: 63 Year
  Sex: Female

DRUGS (7)
  1. KOMBIGLYZE XR [Suspect]
     Indication: TYPE 2 DIABETES MELLITUS
     Dosage: 1 DF = 5/2000MG ;2.5MG/1000MG(BID) 2TABS DAILY; FORMULATION:TABS
     Route: 048
     Dates: start: 20110620
  2. DIOVAN HCT [Concomitant]
     Dosage: 1 DF:80/12.5MG
  3. LEVOTHYROXINE SODIUM [Concomitant]
  4. PLETAL [Concomitant]
  5. ZOLOFT [Concomitant]
  6. METFORMIN HCL [Suspect]
  7. ACTOS [Suspect]

REACTIONS (1)
  - MUSCULAR WEAKNESS [None]
